FAERS Safety Report 9115001 (Version 1)
Quarter: 2013Q1

REPORT INFORMATION
  Report Type: Spontaneous
  Country: US (occurrence: None)
  Receive Date: 20130220
  Receipt Date: 20130220
  Transmission Date: 20140127
  Serious: Yes (Hospitalization)
  Sender: FDA-Public Use
  Company Number: None

PATIENT
  Age: 71 Year
  Sex: Male
  Weight: 102.3 kg

DRUGS (2)
  1. LISINOPRIL [Suspect]
     Indication: HYPERTENSION
     Dosage: 40 MG  EVERY DAY  PO
     Route: 048
     Dates: start: 20111012, end: 20130125
  2. HYDROCHLOROTHIAZIDE [Suspect]
     Indication: HYPERTENSION
     Dosage: 25 MG  EVERY DAY  PO
     Route: 048
     Dates: start: 20111012, end: 20130125

REACTIONS (2)
  - Renal failure acute [None]
  - Renal tubular necrosis [None]
